FAERS Safety Report 19276268 (Version 1)
Quarter: 2021Q2

REPORT INFORMATION
  Report Type: Spontaneous
  Country: US (occurrence: US)
  Receive Date: 20210519
  Receipt Date: 20210519
  Transmission Date: 20210717
  Serious: Yes (Hospitalization)
  Sender: FDA-Public Use
  Company Number: US-PFIZER INC-2021502014

PATIENT
  Age: 60 Year
  Sex: Male
  Weight: 95.25 kg

DRUGS (4)
  1. LISINOPRIL. [Concomitant]
     Active Substance: LISINOPRIL
  2. DEXAMETHASONE. [Concomitant]
     Active Substance: DEXAMETHASONE
  3. LEVOTHYROXINE. [Concomitant]
     Active Substance: LEVOTHYROXINE
  4. GENOTROPIN [Suspect]
     Active Substance: SOMATROPIN
     Indication: HYPOPITUITARISM
     Dosage: 5 MG
     Dates: start: 202001

REACTIONS (2)
  - Product dose omission issue [Not Recovered/Not Resolved]
  - Pituitary tumour benign [Recovered/Resolved with Sequelae]

NARRATIVE: CASE EVENT DATE: 2021
